FAERS Safety Report 6254425-2 (Version None)
Quarter: 2009Q3

REPORT INFORMATION
  Report Type: 
  Country: None (occurrence: None)
  Receive Date: 20090702
  Receipt Date: 20090626
  Transmission Date: 20100115
  Serious: Yes (Hospitalization)
  Sender: FDA-Public Use
  Company Number: US-BIOGENIDEC-2009BI018882

PATIENT
  Age: 44 Year
  Sex: Female

DRUGS (1)
  1. TYSABRI [Suspect]
     Indication: MULTIPLE SCLEROSIS
     Route: 042
     Dates: start: 20080416

REACTIONS (7)
  - CONVULSION [None]
  - DEPRESSION [None]
  - DIZZINESS [None]
  - FATIGUE [None]
  - HYPERSENSITIVITY [None]
  - NAUSEA [None]
  - PROCEDURAL PAIN [None]
